FAERS Safety Report 16887051 (Version 1)
Quarter: 2019Q4

REPORT INFORMATION
  Report Type: Spontaneous
  Country: US (occurrence: US)
  Receive Date: 20191004
  Receipt Date: 20191004
  Transmission Date: 20200122
  Serious: Yes (Death)
  Sender: FDA-Public Use
  Company Number: US-OTSUKA-2019_033975

PATIENT

DRUGS (5)
  1. SELINEXOR [Suspect]
     Active Substance: SELINEXOR
     Dosage: 30 MG/M2, UNK
     Route: 065
  2. DECITABINE. [Suspect]
     Active Substance: DECITABINE
     Indication: ACUTE MYELOID LEUKAEMIA
     Dosage: 20 MG/M2, UNK
     Route: 042
  3. SELINEXOR [Suspect]
     Active Substance: SELINEXOR
     Indication: ACUTE MYELOID LEUKAEMIA
     Dosage: 23 MG/M2, UNK
     Route: 065
  4. SELINEXOR [Suspect]
     Active Substance: SELINEXOR
     Dosage: 40 MG/M2, UNK
     Route: 065
  5. SELINEXOR [Suspect]
     Active Substance: SELINEXOR
     Dosage: 55 MG/M2, UNK
     Route: 065

REACTIONS (1)
  - Colitis [Fatal]
